FAERS Safety Report 10028845 (Version 1)
Quarter: 2014Q1

REPORT INFORMATION
  Report Type: Spontaneous
  Country: IT (occurrence: IT)
  Receive Date: 20140321
  Receipt Date: 20140321
  Transmission Date: 20141002
  Serious: Yes (Hospitalization)
  Sender: FDA-Public Use
  Company Number: IT-MYLANLABS-2014S1005488

PATIENT
  Age: 35 Year
  Sex: Female

DRUGS (2)
  1. LEVOFLOXACIN [Suspect]
     Indication: MENISCUS REMOVAL
     Dosage: 500 MG DAILY
     Route: 048
     Dates: start: 20140205, end: 20140209
  2. CLEXANE [Suspect]
     Indication: MENISCUS REMOVAL
     Dosage: 1 DF DAILY
     Route: 058
     Dates: start: 20140131, end: 20140209

REACTIONS (5)
  - Erythema [Recovering/Resolving]
  - Urticaria [Recovering/Resolving]
  - Pruritus [Recovering/Resolving]
  - Rash [Recovering/Resolving]
  - Adverse drug reaction [Recovering/Resolving]
